FAERS Safety Report 6055878-5 (Version None)
Quarter: 2009Q1

REPORT INFORMATION
  Report Type: 
  Country: None (occurrence: None)
  Receive Date: 20090128
  Receipt Date: 20090126
  Transmission Date: 20090719
  Serious: Yes (Death)
  Sender: FDA-Public Use
  Company Number: US-B.I. PHARMACEUTICALS,INC./RIDGEFIELD-2009-BP-00888BP

PATIENT
  Age: 58 Year
  Sex: Female

DRUGS (4)
  1. COMBIVENT [Suspect]
     Indication: CHRONIC OBSTRUCTIVE PULMONARY DISEASE
     Dates: start: 20040101
  2. ADVAIR DISKUS 100/50 [Concomitant]
  3. LYRICA [Concomitant]
  4. SINGULAIR [Concomitant]

REACTIONS (1)
  - DEATH [None]
